FAERS Safety Report 22993990 (Version 2)
Quarter: 2023Q4

REPORT INFORMATION
  Report Type: Spontaneous
  Country: AT (occurrence: AT)
  Receive Date: 20230927
  Receipt Date: 20231113
  Transmission Date: 20240110
  Serious: No
  Sender: FDA-Public Use
  Company Number: AT-Blueprint Medicines Corporation-SP-AT-2023-001441

PATIENT

DRUGS (1)
  1. AVAPRITINIB [Suspect]
     Active Substance: AVAPRITINIB
     Indication: Smooth muscle cell neoplasm
     Route: 048

REACTIONS (2)
  - Drug intolerance [Unknown]
  - Off label use [Unknown]
